FAERS Safety Report 8426849-6 (Version None)
Quarter: 2012Q2

REPORT INFORMATION
  Report Type: 
  Country: None (occurrence: None)
  Receive Date: 20120611
  Receipt Date: 20120604
  Transmission Date: 20120825
  Serious: Yes (Hospitalization)
  Sender: FDA-Public Use
  Company Number: JP-B.I. PHARMACEUTICALS,INC./RIDGEFIELD-2012-BP-13001NB

PATIENT
  Age: 85 Year
  Sex: Female

DRUGS (6)
  1. MAGNESIUM OXIDE [Concomitant]
     Route: 048
  2. TORSEMIDE [Concomitant]
     Route: 048
  3. ALOSENN [Concomitant]
     Route: 048
  4. PRADAXA [Suspect]
     Indication: ATRIAL FIBRILLATION
     Dosage: 220 MG
     Route: 048
  5. DIGOXIN [Concomitant]
     Route: 048
  6. CANDESARTAN CILEXETIL [Concomitant]
     Route: 048

REACTIONS (3)
  - ASTHENIA [None]
  - DYSPHAGIA [None]
  - PNEUMONIA [None]
